FAERS Safety Report 5351406-8 (Version None)
Quarter: 2007Q2

REPORT INFORMATION
  Report Type: 
  Country: None (occurrence: None)
  Receive Date: 20070608
  Receipt Date: 20070529
  Transmission Date: 20071010
  Serious: Yes (Other)
  Sender: FDA-Public Use
  Company Number: US-PFIZER INC-2007046185

PATIENT
  Sex: Male
  Weight: 90.7 kg

DRUGS (3)
  1. CADUET [Suspect]
     Indication: BLOOD CHOLESTEROL INCREASED
     Dosage: TEXT:10/20 MILLIGRAMS
     Route: 048
  2. CADUET [Suspect]
     Indication: HYPERTENSION
  3. SPIRIVA [Concomitant]

REACTIONS (3)
  - DYSPHONIA [None]
  - OEDEMA PERIPHERAL [None]
  - PHARYNGEAL OEDEMA [None]
